FAERS Safety Report 10430338 (Version 1)
Quarter: 2014Q3

REPORT INFORMATION
  Report Type: Spontaneous
  Country: US (occurrence: None)
  Receive Date: 20140808
  Receipt Date: 20140808
  Transmission Date: 20150326
  Serious: No
  Sender: FDA-Public Use
  Company Number: US-016429

PATIENT
  Age: 72 Year
  Sex: Female
  Weight: 48.54 kg

DRUGS (6)
  1. PREPOPIK [Suspect]
     Active Substance: ANHYDROUS CITRIC ACID\MAGNESIUM OXIDE\SODIUM PICOSULFATE
     Indication: BOWEL PREPARATION
     Dosage: (1ST PACKET AT 12:00PM; 2ND PACKET AT 6:00PM ORAL)
     Route: 048
     Dates: start: 20140706, end: 20140706
  2. TRAMADOL [Concomitant]
     Active Substance: TRAMADOL
  3. ASPIRIN (TO UNKOWN) [Concomitant]
  4. MULTIVITAMIN N /02208701/ [Concomitant]
  5. KLONOPIN [Concomitant]
     Active Substance: CLONAZEPAM
  6. CLIMARA [Concomitant]
     Active Substance: ESTRADIOL

REACTIONS (4)
  - Dizziness [None]
  - Headache [None]
  - Mucous stools [None]
  - Muscle spasms [None]

NARRATIVE: CASE EVENT DATE: 20140707
